FAERS Safety Report 6349674-9 (Version None)
Quarter: 2009Q3

REPORT INFORMATION
  Report Type: 
  Country: None (occurrence: None)
  Receive Date: 20090911
  Receipt Date: 20090901
  Transmission Date: 20100115
  Serious: Yes (Other)
  Sender: FDA-Public Use
  Company Number: PHHY2009SE37109

PATIENT
  Sex: Female

DRUGS (2)
  1. EXELON [Suspect]
     Indication: DEMENTIA ALZHEIMER'S TYPE
     Dosage: 1.5 MG, BID
     Route: 048
     Dates: start: 20040201
  2. EXELON [Suspect]
     Dosage: 4.5 MG, BID
     Route: 048
     Dates: end: 20080716

REACTIONS (13)
  - ABDOMINAL DISCOMFORT [None]
  - CARDIAC DISORDER [None]
  - CHEST DISCOMFORT [None]
  - DEFAECATION URGENCY [None]
  - DIARRHOEA [None]
  - DIZZINESS [None]
  - FEELING ABNORMAL [None]
  - LUNG DISORDER [None]
  - NAUSEA [None]
  - PAINFUL DEFAECATION [None]
  - PALPITATIONS [None]
  - VISUAL IMPAIRMENT [None]
  - VOMITING [None]
